FAERS Safety Report 8258376-3 (Version None)
Quarter: 2012Q2

REPORT INFORMATION
  Report Type: 
  Country: None (occurrence: None)
  Receive Date: 20120404
  Receipt Date: 20120328
  Transmission Date: 20120825
  Serious: Yes (Life-Threatening, Hospitalization, Other)
  Sender: FDA-Public Use
  Company Number: GB-PFIZER INC-2009229032

PATIENT
  Age: 72 Year
  Sex: Male

DRUGS (12)
  1. AMOXICILLIN [Suspect]
     Dosage: 500 MG, 3X/DAY
     Route: 048
     Dates: start: 20060601
  2. ATENOLOL [Concomitant]
     Indication: HYPERTENSION
     Dosage: 50 MG, 1X/DAY
  3. GRANISETRON [Concomitant]
     Dosage: UNK
     Route: 048
     Dates: start: 20060401
  4. GEMCITABINE [Suspect]
     Dosage: 4 IN 1 CYCLICAL
     Dates: start: 20060201
  5. CHLORDIAZEPOXIDE [Concomitant]
     Dosage: 10 MG, 4X/DAY
     Dates: start: 20060501
  6. CARBOPLATIN [Suspect]
     Dosage: 4 IN 1 CYCLICAL
     Dates: start: 20060201
  7. CLARITHROMYCIN [Concomitant]
     Dosage: 3 IN 1 CYCLICAL
  8. OMEPRAZOLE [Suspect]
     Dosage: 20 MG, UNK
     Route: 048
     Dates: start: 20060601
  9. ACETYLSALICYLIC ACID [Concomitant]
     Indication: CARDIOVASCULAR EVENT PROPHYLAXIS
     Dosage: 75 MG, 1X/DAY
  10. SIMVASTATIN [Suspect]
     Indication: BLOOD CHOLESTEROL INCREASED
     Dosage: 80 MG, 1X/DAY
     Route: 048
  11. CIPROFLOXACIN [Concomitant]
     Indication: PROPHYLAXIS OF NAUSEA AND VOMITING
     Dosage: 3 IN 1 CYCLICAL
  12. CORACTEN [Concomitant]
     Indication: HYPERTENSION
     Dosage: 30 MG, 1X/DAY

REACTIONS (2)
  - RENAL FAILURE ACUTE [None]
  - RHABDOMYOLYSIS [None]
